FAERS Safety Report 6357425-7 (Version None)
Quarter: 2009Q3

REPORT INFORMATION
  Report Type: 
  Country: None (occurrence: None)
  Receive Date: 20090916
  Receipt Date: 20071008
  Transmission Date: 20100115
  Serious: Yes (Other)
  Sender: FDA-Public Use
  Company Number: US-ASTRAZENECA-2007UW18689

PATIENT
  Age: 12648 Day
  Sex: Male
  Weight: 94.3 kg

DRUGS (14)
  1. SEROQUEL [Suspect]
     Indication: BIPOLAR DISORDER
     Dosage: 50-100 MG
     Route: 048
     Dates: start: 20001122
  2. SEROQUEL [Suspect]
     Route: 048
     Dates: start: 20010101, end: 20020101
  3. ABILIFY (ARIPIPARAZOLE) [Concomitant]
     Dates: start: 19900101
  4. ABILIFY (ARIPIPARAZOLE) [Concomitant]
     Dates: start: 20040101
  5. OMACOR [Concomitant]
  6. TRICOR [Concomitant]
  7. HALDOL [Concomitant]
  8. STELAZINE [Concomitant]
  9. THORAZINE [Concomitant]
     Dates: start: 20010101, end: 20040101
  10. DEPAKENE [Concomitant]
     Dosage: 750-3000 MG
     Route: 048
     Dates: start: 20001011
  11. DEPAKOTE [Concomitant]
     Dosage: 500-1250 MG
     Route: 048
     Dates: start: 20010101
  12. AVANDIA [Concomitant]
     Dates: start: 20030429
  13. LOPID [Concomitant]
     Dates: start: 20040830
  14. LITHOBID [Concomitant]
     Dates: start: 19960624

REACTIONS (10)
  - CORONARY ARTERY DISEASE [None]
  - DIABETES MELLITUS [None]
  - DIABETES MELLITUS INADEQUATE CONTROL [None]
  - DIABETIC NEPHROPATHY [None]
  - HYPERTENSION [None]
  - ISCHAEMIA [None]
  - MITRAL VALVE INCOMPETENCE [None]
  - PANCREATITIS [None]
  - TYPE 1 DIABETES MELLITUS [None]
  - TYPE 2 DIABETES MELLITUS [None]
